FAERS Safety Report 4456291-4 (Version None)
Quarter: 2004Q3

REPORT INFORMATION
  Report Type: 
  Country: None (occurrence: None)
  Receive Date: 20040917
  Receipt Date: 20040826
  Transmission Date: 20050211
  Serious: Yes (Hospitalization)
  Sender: FDA-Public Use
  Company Number: USA040876614

PATIENT
  Sex: Female

DRUGS (1)
  1. HUMULIN 70/30 [Suspect]
     Dosage: 82 U DAY
     Dates: start: 20020101

REACTIONS (7)
  - CEREBROVASCULAR ACCIDENT [None]
  - FEELING ABNORMAL [None]
  - HYPERTENSION [None]
  - NAUSEA [None]
  - PHARMACEUTICAL PRODUCT COMPLAINT [None]
  - VISUAL ACUITY REDUCED [None]
  - WEIGHT INCREASED [None]
